FAERS Safety Report 26188171 (Version 3)
Quarter: 2025Q4

REPORT INFORMATION
  Report Type: Report from Study
  Country: CN (occurrence: CN)
  Receive Date: 20251222
  Receipt Date: 20251231
  Transmission Date: 20260118
  Serious: Yes (Other)
  Sender: PFIZER
  Company Number: CN-TAKEDA-2022TUS031991

PATIENT
  Age: 32 Year
  Sex: Female

DRUGS (24)
  1. BRENTUXIMAB VEDOTIN [Suspect]
     Active Substance: BRENTUXIMAB VEDOTIN
     Indication: Hodgkin^s disease nodular sclerosis
     Dosage: 100 MILLIGRAM, Q3WEEKS
     Route: 041
     Dates: start: 20211106
  2. EPIRUBICIN HYDROCHLORIDE [Suspect]
     Active Substance: EPIRUBICIN HYDROCHLORIDE
     Indication: Lymphoma
     Dosage: 69 MILLIGRAM, QD
     Route: 042
     Dates: start: 20211106, end: 20211106
  3. VINDESINE [Suspect]
     Active Substance: VINDESINE
     Indication: Lymphoma
     Dosage: 4 MILLIGRAM, QD
     Route: 042
     Dates: start: 20211106, end: 20211106
  4. DACARBAZINE [Suspect]
     Active Substance: DACARBAZINE
     Indication: Lymphoma
     Dosage: 740 MILLIGRAM, QD
     Route: 042
     Dates: start: 20211106, end: 20211106
  5. CEFACLOR [Concomitant]
     Active Substance: CEFACLOR
     Indication: Infection
     Dosage: UNK
     Route: 048
     Dates: start: 202111
  6. LECITHIN [Concomitant]
     Active Substance: LECITHIN
     Indication: Liver disorder
     Dosage: UNK UNK, TID
     Route: 048
     Dates: start: 202111
  7. LEUCOGEN [Concomitant]
     Active Substance: LEUCOGEN
     Indication: White blood cell count decreased
     Dosage: UNK
     Route: 048
     Dates: start: 202111
  8. SULFAMETHOXAZOLE [Concomitant]
     Active Substance: SULFAMETHOXAZOLE
     Indication: Prophylaxis
     Dosage: UNK UNK, QD
     Route: 048
     Dates: start: 202111
  9. SULFAMETHOXAZOLE [Concomitant]
     Active Substance: SULFAMETHOXAZOLE
     Indication: Pneumocystis jirovecii pneumonia
  10. ACYCLOVIR [Concomitant]
     Active Substance: ACYCLOVIR
     Indication: Prophylaxis
     Dosage: UNK UNK, BID
     Route: 048
     Dates: start: 202111
  11. HERBALS\DIAMMONIUM GLYCYRRHIZINATE [Concomitant]
     Active Substance: HERBALS\DIAMMONIUM GLYCYRRHIZINATE
     Indication: Prophylaxis
     Dosage: UNK, 2X/DAY
     Route: 048
     Dates: start: 202111
  12. PEGYLATED RECOMBINANT HUMAN GRANULOCYTE COLONY STIMULATING FACTOR [Concomitant]
     Indication: White blood cell count increased
     Dosage: 6 MILLIGRAM, QD
     Route: 058
     Dates: start: 20211126, end: 20211126
  13. PEGYLATED RECOMBINANT HUMAN GRANULOCYTE COLONY STIMULATING FACTOR [Concomitant]
     Dosage: 6 MILLIGRAM, QD
     Route: 058
     Dates: start: 20211213, end: 20211213
  14. OMEPRAZOLE SODIUM [Concomitant]
     Active Substance: OMEPRAZOLE SODIUM
     Indication: Prophylaxis
     Dosage: 40 MILLIGRAM, QD
     Route: 042
     Dates: start: 20211106, end: 20211106
  15. OMEPRAZOLE SODIUM [Concomitant]
     Active Substance: OMEPRAZOLE SODIUM
     Dosage: 40 MILLIGRAM, QD
     Route: 042
     Dates: start: 20211125, end: 20211125
  16. OMEPRAZOLE SODIUM [Concomitant]
     Active Substance: OMEPRAZOLE SODIUM
     Dosage: 40 MILLIGRAM, QD
     Route: 042
     Dates: start: 20211213, end: 20211213
  17. SODIUM BICARBONATE [Concomitant]
     Active Substance: SODIUM BICARBONATE
     Indication: Acidosis
     Dosage: 250 MILLILITER, QD
     Route: 042
     Dates: start: 20211106, end: 20211107
  18. SODIUM BICARBONATE [Concomitant]
     Active Substance: SODIUM BICARBONATE
     Dosage: 250 MILLILITER, QD
     Route: 042
     Dates: start: 20211125, end: 20211125
  19. SODIUM BICARBONATE [Concomitant]
     Active Substance: SODIUM BICARBONATE
     Dosage: 250 MILLILITER, QD
     Route: 042
     Dates: start: 20211213, end: 20211213
  20. DEXAMETHASONE [Concomitant]
     Active Substance: DEXAMETHASONE
     Indication: Antiallergic therapy
     Dosage: 5 MILLIGRAM, QD
     Route: 042
     Dates: start: 20211106, end: 20211107
  21. DEXAMETHASONE [Concomitant]
     Active Substance: DEXAMETHASONE
     Indication: Infusion related reaction
     Dosage: 5 MILLIGRAM, QD
     Route: 042
     Dates: start: 20211213, end: 20211213
  22. CEFTAZIDIME [Concomitant]
     Active Substance: CEFTAZIDIME
     Indication: Infection prophylaxis
     Dosage: 2 GRAM, BID
     Route: 042
     Dates: start: 20211106, end: 20211107
  23. PALONOSETRON HYDROCHLORIDE [Concomitant]
     Active Substance: PALONOSETRON HYDROCHLORIDE
     Indication: Prophylaxis of nausea and vomiting
     Dosage: 0.5 MILLIGRAM, QD
     Route: 048
     Dates: start: 20211106, end: 20211106
  24. ESSENTIALE N [PHOSPHOLIPIDS] [Concomitant]
     Indication: Prophylaxis
     Dosage: UNK UNK, TID
     Route: 048
     Dates: start: 202111

REACTIONS (3)
  - Liver injury [Not Recovered/Not Resolved]
  - Anaemia [Recovered/Resolved]
  - Folliculitis [Not Recovered/Not Resolved]

NARRATIVE: CASE EVENT DATE: 20211214
